APPROVED DRUG PRODUCT: ZECUITY
Active Ingredient: SUMATRIPTAN SUCCINATE
Strength: EQ 6.5MG BASE/4HR
Dosage Form/Route: SYSTEM;IONTOPHORESIS
Application: N202278 | Product #001
Applicant: TEVA BRANDED PHARMACEUTICAL PRODUCTS R AND D INC
Approved: Jan 17, 2013 | RLD: Yes | RS: No | Type: DISCN

PATENTS:
Patent 8983594 | Expires: Nov 19, 2030
Patent 9427578 | Expires: Apr 12, 2027
Patent 9327114 | Expires: Oct 8, 2032
Patent 8597272 | Expires: Apr 12, 2027
Patent 9272137 | Expires: Sep 7, 2027
Patent 7973058 | Expires: Apr 12, 2027
Patent 8155737 | Expires: Apr 12, 2027
Patent 8366600 | Expires: Apr 21, 2029
Patent 8470853 | Expires: Apr 12, 2027